FAERS Safety Report 22637318 (Version 1)
Quarter: 2023Q2

REPORT INFORMATION
  Report Type: Spontaneous
  Country: CN (occurrence: CN)
  Receive Date: 20230626
  Receipt Date: 20230626
  Transmission Date: 20230721
  Serious: Yes (Hospitalization, Other)
  Sender: FDA-Public Use
  Company Number: CN-MYLANLABS-2023M1065026

PATIENT
  Age: 46 Year
  Sex: Male
  Weight: 61 kg

DRUGS (4)
  1. LIPITOR [Suspect]
     Active Substance: ATORVASTATIN CALCIUM
     Indication: Arteriosclerosis
     Dosage: 20 MILLIGRAM, QD
     Route: 048
     Dates: start: 20230522, end: 20230613
  2. RIVAROXABAN [Concomitant]
     Active Substance: RIVAROXABAN
     Indication: Prophylaxis
     Dosage: 20 MILLIGRAM, QD
     Route: 048
     Dates: start: 20230522, end: 20230616
  3. ENTRESTO [Concomitant]
     Active Substance: SACUBITRIL\VALSARTAN
     Indication: Cardiac failure
     Dosage: 25 MILLIGRAM, BID
     Route: 048
     Dates: start: 20230522, end: 20230616
  4. CORDARONE [Concomitant]
     Active Substance: AMIODARONE HYDROCHLORIDE
     Indication: Atrial fibrillation
     Dosage: 0.2 GRAM, BID
     Route: 048
     Dates: start: 20230522, end: 20230616

REACTIONS (2)
  - Scrotal pain [Recovering/Resolving]
  - Epididymitis [Recovering/Resolving]

NARRATIVE: CASE EVENT DATE: 20230609
